FAERS Safety Report 9846391 (Version 4)
Quarter: 2014Q1

REPORT INFORMATION
  Report Type: Spontaneous
  Country: NO (occurrence: NO)
  Receive Date: 20140127
  Receipt Date: 20140307
  Transmission Date: 20141002
  Serious: Yes (Other)
  Sender: FDA-Public Use
  Company Number: PHHY2014NO003218

PATIENT
  Age: 33 Year
  Sex: Male

DRUGS (9)
  1. CLOZAPINE [Suspect]
     Indication: SCHIZOPHRENIA
  2. BUPRENORPHINE [Suspect]
  3. AMISULPRIDE [Suspect]
  4. TERBUTALINE [Suspect]
  5. LEVOMEPROMAZINE [Suspect]
     Dosage: 1 DF, PRN
  6. PERPHENAZINE [Suspect]
  7. OLANZAPINE [Suspect]
     Dosage: 2.5 MG, DAILY
  8. RISPERIDONE [Suspect]
  9. TRUXAL [Suspect]
     Dosage: 0.2 MG,

REACTIONS (4)
  - Priapism [Recovered/Resolved]
  - Spontaneous penile erection [Recovered/Resolved]
  - Hyperprolactinaemia [Unknown]
  - Myalgia [Recovered/Resolved]
